FAERS Safety Report 7332746-X (Version None)
Quarter: 2011Q1

REPORT INFORMATION
  Report Type: 
  Country: None (occurrence: None)
  Receive Date: 20110304
  Receipt Date: 20110223
  Transmission Date: 20110831
  Serious: Yes (Congenital Anomaly)
  Sender: FDA-Public Use
  Company Number: DE-ASTRAZENECA-2011SE10381

PATIENT

DRUGS (1)
  1. SEROQUEL [Suspect]
     Route: 064

REACTIONS (1)
  - MICRODACTYLY [None]
